FAERS Safety Report 19906706 (Version 1)
Quarter: 2021Q4

REPORT INFORMATION
  Report Type: Spontaneous
  Country: FR (occurrence: FR)
  Receive Date: 20211001
  Receipt Date: 20211001
  Transmission Date: 20220303
  Serious: Yes (Other)
  Sender: FDA-Public Use
  Company Number: None

PATIENT
  Age: 78 Year
  Sex: Male

DRUGS (1)
  1. METHOTREXATE SODIUM [Suspect]
     Active Substance: METHOTREXATE SODIUM
     Indication: Rheumatoid arthritis
     Dosage: ONE TABLET OF METHOTREXATE 10 MG ONCE DAILY
     Route: 048
     Dates: start: 20200822, end: 20200918

REACTIONS (12)
  - Product use issue [Recovered/Resolved]
  - Off label use [Recovered/Resolved]
  - Overdose [Unknown]
  - Inappropriate schedule of product administration [Recovered/Resolved]
  - Aplastic anaemia [Recovering/Resolving]
  - Petechiae [Unknown]
  - Rash [Unknown]
  - Alanine aminotransferase increased [Recovered/Resolved]
  - Aspartate aminotransferase increased [Recovered/Resolved]
  - Coagulation time prolonged [Recovered/Resolved]
  - Coagulation factor V level increased [Recovered/Resolved]
  - Blood fibrinogen increased [Recovered/Resolved]

NARRATIVE: CASE EVENT DATE: 20200822
